FAERS Safety Report 9467455 (Version 2)
Quarter: 2013Q3

REPORT INFORMATION
  Report Type: Spontaneous
  Country: US (occurrence: US)
  Receive Date: 20130821
  Receipt Date: 20130822
  Transmission Date: 20140515
  Serious: Yes (Other)
  Sender: FDA-Public Use
  Company Number: PHEH2013US017589

PATIENT
  Age: 58 Year
  Sex: Female
  Weight: 66.21 kg

DRUGS (5)
  1. TEKTURNA [Suspect]
     Indication: HYPERTENSION
     Dosage: 150 MG, QD
     Route: 048
     Dates: start: 20130717, end: 20130815
  2. TOPAMAX [Concomitant]
     Indication: MIGRAINE
     Dosage: 175 MG, DAILY
     Route: 048
     Dates: start: 201105
  3. THYROID [Concomitant]
     Indication: THYROID DISORDER
     Dosage: UNK UKN, UNK
  4. THYROID [Concomitant]
     Indication: THYROID DISORDER
  5. TENORMIN [Concomitant]
     Dosage: 50 MG, QD
     Route: 048
     Dates: start: 2008

REACTIONS (5)
  - Depression [Unknown]
  - Lethargy [Unknown]
  - Decreased appetite [Unknown]
  - Myasthenia gravis [Unknown]
  - Mood altered [Recovered/Resolved]
